FAERS Safety Report 12438554 (Version 2)
Quarter: 2016Q2

REPORT INFORMATION
  Report Type: Spontaneous
  Country: FR (occurrence: FR)
  Receive Date: 20160606
  Receipt Date: 20160610
  Transmission Date: 20160815
  Serious: Yes (Hospitalization, Other)
  Sender: FDA-Public Use
  Company Number: FR-PFIZER INC-2014163532

PATIENT
  Age: 68 Year
  Sex: Female
  Weight: 50 kg

DRUGS (16)
  1. IMETH [Suspect]
     Active Substance: METHOTREXATE SODIUM
     Indication: POLYARTERITIS NODOSA
     Dosage: 7.5 MG, WEEKLY
     Route: 048
     Dates: start: 20140326
  2. MABTHERA [Suspect]
     Active Substance: RITUXIMAB
     Dosage: 1 G, ONCE EVERY 15 DAYS
     Route: 051
     Dates: start: 20131027, end: 20140521
  3. PREDNISONE. [Suspect]
     Active Substance: PREDNISONE
     Indication: POLYARTERITIS NODOSA
     Dosage: 40 MG, DAILY
     Route: 048
     Dates: start: 2008
  4. FORSTEO [Concomitant]
     Active Substance: TERIPARATIDE
     Dosage: 20 UG, DAILY
     Route: 058
     Dates: start: 20140211
  5. KARDEGIC [Concomitant]
     Active Substance: ASPIRIN LYSINE
  6. DIFFU K [Concomitant]
     Active Substance: POTASSIUM CHLORIDE
  7. NOVATREX NOS [Suspect]
     Active Substance: AZITHROMYCIN OR METHOTREXATE SODIUM
     Indication: POLYARTERITIS NODOSA
     Dosage: 10 MG, WEEKLY
     Route: 048
     Dates: start: 2008, end: 20140326
  8. PREDNISONE. [Suspect]
     Active Substance: PREDNISONE
     Dosage: 15 MG, 1X/DAY
     Route: 048
     Dates: start: 20130919
  9. PREDNISONE. [Suspect]
     Active Substance: PREDNISONE
     Dosage: UNK
     Route: 048
  10. CACIT D3 [Concomitant]
     Active Substance: CALCIUM\CHOLECALCIFEROL
     Dosage: 500 MG, 2X/DAY
     Dates: start: 20070919
  11. DOLIPRANE [Concomitant]
     Active Substance: ACETAMINOPHEN
  12. INEXIUM /01479302/ [Concomitant]
     Active Substance: ESOMEPRAZOLE MAGNESIUM
  13. FOLIC ACID. [Concomitant]
     Active Substance: FOLIC ACID
     Dosage: 5 MG, WEEKLY
     Dates: start: 20130919
  14. UMULINE [Concomitant]
     Active Substance: INSULIN HUMAN
     Dosage: 7 IU, 1X/DAY
     Dates: start: 20130919
  15. RABEPRAZOLE SODIUM. [Concomitant]
     Active Substance: RABEPRAZOLE SODIUM
     Dosage: 20 MG, DAILY
     Dates: start: 20130919
  16. SERESTA [Concomitant]
     Active Substance: OXAZEPAM

REACTIONS (5)
  - Bronchitis [Recovered/Resolved]
  - Enterobacter sepsis [Recovered/Resolved]
  - Secondary immunodeficiency [Recovered/Resolved with Sequelae]
  - Condition aggravated [Not Recovered/Not Resolved]
  - Arthritis bacterial [Unknown]

NARRATIVE: CASE EVENT DATE: 201402
